FAERS Safety Report 6583233-8 (Version None)
Quarter: 2010Q1

REPORT INFORMATION
  Report Type: 
  Country: None (occurrence: None)
  Receive Date: 20100216
  Receipt Date: 20100210
  Transmission Date: 20100710
  Serious: Yes (Hospitalization)
  Sender: FDA-Public Use
  Company Number: CH-SANOFI-AVENTIS-2010SA007990

PATIENT
  Sex: Male

DRUGS (3)
  1. AMARYL [Suspect]
     Route: 048
     Dates: end: 20090801
  2. METFIN [Suspect]
     Route: 048
     Dates: end: 20090801
  3. XATRAL [Concomitant]
     Route: 048

REACTIONS (3)
  - ANAEMIA [None]
  - THROMBOCYTOPENIA [None]
  - VITAMIN B12 DEFICIENCY [None]
